FAERS Safety Report 6658017-2 (Version None)
Quarter: 2010Q1

REPORT INFORMATION
  Report Type: 
  Country: None (occurrence: None)
  Receive Date: 20100330
  Receipt Date: 20100326
  Transmission Date: 20100710
  Serious: Yes (Other)
  Sender: FDA-Public Use
  Company Number: CHPA2010US05858

PATIENT
  Age: 47 Year
  Sex: Female
  Weight: 58.957 kg

DRUGS (3)
  1. TRANSDERM SCOP [Suspect]
     Indication: NAUSEA
     Dosage: 1 DF, Q72H
     Route: 062
     Dates: start: 20091101
  2. TRANSDERM SCOP [Suspect]
     Indication: VOMITING
  3. TAMOXIFEN CITRATE [Concomitant]
     Dosage: 1 DF, QD
     Route: 048

REACTIONS (5)
  - DRUG DEPENDENCE [None]
  - DRUG WITHDRAWAL SYNDROME [None]
  - HEADACHE [None]
  - VISION BLURRED [None]
  - VOMITING [None]
